FAERS Safety Report 6500130-4 (Version None)
Quarter: 2009Q4

REPORT INFORMATION
  Report Type: 
  Country: None (occurrence: None)
  Receive Date: 20091214
  Receipt Date: 20091214
  Transmission Date: 20100525
  Serious: Yes (Hospitalization)
  Sender: FDA-Public Use
  Company Number: None

PATIENT
  Age: 49 Year
  Sex: Female
  Weight: 82 kg

DRUGS (1)
  1. CALCITRIOL [Suspect]
     Indication: HYPERPARATHYROIDISM SECONDARY
     Dosage: 2 MCG QTX IVP
     Route: 042
     Dates: start: 20091030

REACTIONS (2)
  - CHEST PAIN [None]
  - DYSPNOEA [None]
